FAERS Safety Report 14693976 (Version 1)
Quarter: 2018Q1

REPORT INFORMATION
  Report Type: Spontaneous
  Country: FR (occurrence: FR)
  Receive Date: 20180329
  Receipt Date: 20180329
  Transmission Date: 20180509
  Serious: Yes (Hospitalization)
  Sender: FDA-Public Use
  Company Number: FR-JNJFOC-20180338051

PATIENT
  Age: 69 Year
  Sex: Female
  Weight: 75.28 kg

DRUGS (1)
  1. XARELTO [Suspect]
     Active Substance: RIVAROXABAN
     Indication: ATRIAL FIBRILLATION
     Route: 048
     Dates: end: 20180306

REACTIONS (1)
  - Renal vascular thrombosis [Recovering/Resolving]

NARRATIVE: CASE EVENT DATE: 20180216
